FAERS Safety Report 10907971 (Version 1)
Quarter: 2015Q1

REPORT INFORMATION
  Report Type: Spontaneous
  Country: US (occurrence: US)
  Receive Date: 20150312
  Receipt Date: 20150312
  Transmission Date: 20150721
  Serious: No
  Sender: FDA-Public Use
  Company Number: US-INCYTE CORPORATION-2014IN003948

PATIENT
  Sex: Male
  Weight: 90.7 kg

DRUGS (6)
  1. JAKAFI [Suspect]
     Active Substance: RUXOLITINIB
     Indication: MYELOFIBROSIS
     Dosage: 15 MG, UNK
     Route: 048
  2. GLIMEPIRIDE. [Concomitant]
     Active Substance: GLIMEPIRIDE
  3. COREG [Concomitant]
     Active Substance: CARVEDILOL
  4. JAKAFI [Suspect]
     Active Substance: RUXOLITINIB
     Dosage: 10 MG, BID
     Route: 048
     Dates: start: 201205
  5. LASIX [Concomitant]
     Active Substance: FUROSEMIDE
  6. DOXEPIN [Concomitant]
     Active Substance: DOXEPIN

REACTIONS (1)
  - Pruritus [Not Recovered/Not Resolved]
